FAERS Safety Report 25888044 (Version 1)
Quarter: 2025Q4

REPORT INFORMATION
  Report Type: Spontaneous
  Country: US (occurrence: US)
  Receive Date: 20251007
  Receipt Date: 20251007
  Transmission Date: 20260117
  Serious: Yes (Other)
  Sender: STRIDES
  Company Number: US-STRIDES PHARMA UK LTD.-2025SP010254

PATIENT
  Age: 62 Year
  Sex: Female

DRUGS (9)
  1. AZATHIOPRINE [Suspect]
     Active Substance: AZATHIOPRINE
     Indication: Cutaneous sarcoidosis
     Dosage: UNK
     Route: 065
  2. AZATHIOPRINE [Suspect]
     Active Substance: AZATHIOPRINE
     Indication: Neurosarcoidosis
  3. AZATHIOPRINE [Suspect]
     Active Substance: AZATHIOPRINE
     Indication: Pulmonary sarcoidosis
  4. PREDNISONE [Suspect]
     Active Substance: PREDNISONE
     Indication: Cutaneous sarcoidosis
     Dosage: UNK
     Route: 065
  5. PREDNISONE [Suspect]
     Active Substance: PREDNISONE
     Indication: Neurosarcoidosis
  6. PREDNISONE [Suspect]
     Active Substance: PREDNISONE
     Indication: Pulmonary sarcoidosis
  7. ADALIMUMAB [Suspect]
     Active Substance: ADALIMUMAB
     Indication: Pulmonary sarcoidosis
     Dosage: UNK
     Route: 065
  8. ADALIMUMAB [Suspect]
     Active Substance: ADALIMUMAB
     Indication: Neurosarcoidosis
  9. ADALIMUMAB [Suspect]
     Active Substance: ADALIMUMAB
     Indication: Cutaneous sarcoidosis

REACTIONS (2)
  - Disease progression [Unknown]
  - Off label use [Unknown]
